FAERS Safety Report 7355276-8 (Version None)
Quarter: 2011Q1

REPORT INFORMATION
  Report Type: 
  Country: None (occurrence: None)
  Receive Date: 20110316
  Receipt Date: 20110310
  Transmission Date: 20110831
  Serious: No
  Sender: FDA-Public Use
  Company Number: JP-CTI_01329_2011

PATIENT
  Age: 83 Year
  Sex: Female

DRUGS (1)
  1. MEIACT MS TABLET [Suspect]
     Indication: RESPIRATORY TRACT INFECTION
     Route: 048
     Dates: start: 20110308, end: 20110308

REACTIONS (3)
  - ASTHENIA [None]
  - DRUG ERUPTION [None]
  - HYPOTENSION [None]
